FAERS Safety Report 21592549 (Version 1)
Quarter: 2022Q4

REPORT INFORMATION
  Report Type: Other
  Country: US (occurrence: None)
  Receive Date: 20221114
  Receipt Date: 20221114
  Transmission Date: 20230113
  Serious: Yes (Hospitalization)
  Sender: FDA-Public Use
  Company Number: US-ROCHE-3216293

PATIENT
  Age: 65 Year
  Sex: Male
  Weight: 147.55 kg

DRUGS (16)
  1. OCREVUS [Suspect]
     Active Substance: OCRELIZUMAB
     Indication: Relapsing-remitting multiple sclerosis
     Dosage: UNKNOWN
     Route: 042
     Dates: start: 2019
  2. NAPROXEN [Concomitant]
     Active Substance: NAPROXEN
     Route: 048
  3. BACLOFEN [Concomitant]
     Active Substance: BACLOFEN
  4. CLARITIN [Concomitant]
     Active Substance: LORATADINE
  5. DOCUSATE SODIUM [Concomitant]
     Active Substance: DOCUSATE SODIUM
  6. ELIQUIS [Concomitant]
     Active Substance: APIXABAN
  7. FLUTICASONE [Concomitant]
     Active Substance: FLUTICASONE
  8. POTASSIUM [Concomitant]
     Active Substance: POTASSIUM
  9. LOVASTATIN [Concomitant]
     Active Substance: LOVASTATIN
  10. ASPIRIN [Concomitant]
     Active Substance: ASPIRIN
  11. MELOXICAM [Concomitant]
     Active Substance: MELOXICAM
  12. FUROSEMIDE [Concomitant]
     Active Substance: FUROSEMIDE
  13. LIPITOR [Concomitant]
     Active Substance: ATORVASTATIN CALCIUM
  14. AMLODIPINE [Concomitant]
     Active Substance: AMLODIPINE BESYLATE
  15. METOPROLOL SUCCINATE [Concomitant]
     Active Substance: METOPROLOL SUCCINATE
  16. TECFIDERA [Concomitant]
     Active Substance: DIMETHYL FUMARATE

REACTIONS (1)
  - Pneumonia [Recovering/Resolving]

NARRATIVE: CASE EVENT DATE: 20221106
